FAERS Safety Report 9456867 (Version 1)
Quarter: 2013Q3

REPORT INFORMATION
  Report Type: Spontaneous
  Country: GB (occurrence: GB)
  Receive Date: 20130813
  Receipt Date: 20130813
  Transmission Date: 20140515
  Serious: Yes (Hospitalization, Other)
  Sender: FDA-Public Use
  Company Number: GB-ACTAVIS-2013-14426

PATIENT
  Age: 14 Year
  Sex: Male

DRUGS (38)
  1. VINORELBINE (UNKNOWN) [Suspect]
     Indication: PRODUCT USED FOR UNKNOWN INDICATION
     Dosage: 29 MG, UNKNOWN
     Route: 040
     Dates: start: 20130531
  2. DOXORUBICIN (UNKNOWN) [Suspect]
     Indication: NEOPLASM MALIGNANT
     Dosage: 48 MG, DAILY
     Route: 042
     Dates: start: 20121102, end: 20121102
  3. DOXORUBICIN (UNKNOWN) [Suspect]
     Dosage: 48 MG, DAILY
     Route: 042
     Dates: start: 20121102, end: 20121102
  4. DOXORUBICIN (UNKNOWN) [Suspect]
     Dosage: 48 MG, UNKNOWN
     Route: 042
     Dates: start: 20121103
  5. DOXORUBICIN (UNKNOWN) [Suspect]
     Dosage: 45 MG, DAILY
     Route: 042
     Dates: start: 20121123
  6. VINCRISTINE (UNKNOWN) [Suspect]
     Indication: NEOPLASM MALIGNANT
     Dosage: 3 MG, PER TRIMESTER
     Route: 040
     Dates: start: 20121123
  7. VINCRISTINE (UNKNOWN) [Suspect]
     Dosage: 2 MG, UNKNOWN
     Route: 040
     Dates: start: 20121130
  8. VINCRISTINE (UNKNOWN) [Suspect]
     Dosage: 2 MG, UNKNOWN
     Route: 040
     Dates: start: 20121102
  9. VINCRISTINE (UNKNOWN) [Suspect]
     Dosage: UNK UNK, UNKNOWN
     Route: 065
     Dates: start: 20130215
  10. CYCLOPHOSPHAMIDE (UNKNOWN) [Suspect]
     Indication: NEOPLASM MALIGNANT
     Dosage: 29 MG, UNKNOWN
     Route: 048
     Dates: start: 20130531, end: 20130701
  11. IFOSFAMIDE [Suspect]
     Indication: NEOPLASM MALIGNANT
     Dosage: UNK, UNKNOWN
     Route: 065
     Dates: start: 20130215
  12. IFOSFAMIDE [Suspect]
     Dosage: 4650 MG, UNKNOWN
     Route: 042
     Dates: start: 20121102
  13. IFOSFAMIDE [Suspect]
     Dosage: 4650 MG, UNKNOWN
     Route: 042
     Dates: start: 20121102
  14. IFOSFAMIDE [Suspect]
     Dosage: 4800 MG, UNKNOWN
     Route: 042
     Dates: start: 20121123
  15. IFOSFAMIDE [Suspect]
     Dosage: 4800 MG, UNKNOWN
     Route: 042
     Dates: start: 20121123
  16. DACTINOMYCIN [Suspect]
     Indication: NEOPLASM MALIGNANT
     Dosage: 2 MG, UNKNOWN
     Route: 040
     Dates: start: 20121102
  17. DACTINOMYCIN [Suspect]
     Dosage: 2 MG, UNKNOWN
     Route: 040
     Dates: start: 20121123
  18. DACTINOMYCIN [Suspect]
     Dosage: UNK UNK, UNKNOWN
     Route: 065
     Dates: start: 20130215
  19. LACTULOSE [Concomitant]
     Indication: PRODUCT USED FOR UNKNOWN INDICATION
     Dosage: UNK, UNKNOWN
     Route: 065
  20. MACROGOL [Concomitant]
     Indication: PRODUCT USED FOR UNKNOWN INDICATION
     Dosage: UNK, UNKNOWN
     Route: 065
     Dates: start: 20121101
  21. POTASSIUM CHLORIDE [Concomitant]
     Indication: PRODUCT USED FOR UNKNOWN INDICATION
     Dosage: UNK, UNKNOWN
     Route: 065
     Dates: start: 20121101
  22. SODIUM BICARBONATE [Concomitant]
     Indication: PRODUCT USED FOR UNKNOWN INDICATION
     Dosage: UNK, UNKNOWN
     Route: 065
     Dates: start: 20121101
  23. SODIUM CHLORIDE [Concomitant]
     Indication: PRODUCT USED FOR UNKNOWN INDICATION
     Dosage: UNK, UNKNOWN
     Route: 065
     Dates: start: 20121101
  24. SENNOSIDES A+B [Concomitant]
     Indication: PRODUCT USED FOR UNKNOWN INDICATION
     Dosage: UNK, UNKNOWN
     Route: 065
     Dates: start: 20121101
  25. ONDANSETRON [Concomitant]
     Indication: PRODUCT USED FOR UNKNOWN INDICATION
     Dosage: UNK, UNKNOWN
     Route: 065
     Dates: start: 20121102
  26. CYCLIZINE [Concomitant]
     Indication: PRODUCT USED FOR UNKNOWN INDICATION
     Dosage: UNK, UNKNOWN
     Route: 065
     Dates: start: 20121102
  27. PARACETAMOL [Concomitant]
     Indication: PRODUCT USED FOR UNKNOWN INDICATION
     Dosage: UNK, UNKNOWN
     Route: 065
     Dates: start: 20121102
  28. MORPHINE SULFATE [Concomitant]
     Indication: PRODUCT USED FOR UNKNOWN INDICATION
     Dosage: UNK, UNKNOWN
     Route: 065
     Dates: start: 20121101
  29. BISACODYL [Concomitant]
     Indication: PRODUCT USED FOR UNKNOWN INDICATION
     Dosage: UNK, UNKNOWN
     Route: 065
     Dates: start: 20121101
  30. GABAPENTIN [Concomitant]
     Indication: PRODUCT USED FOR UNKNOWN INDICATION
     Dosage: UNK, UNKNOWN
     Route: 065
     Dates: start: 20130607
  31. CETIRIZINE [Concomitant]
     Indication: PRODUCT USED FOR UNKNOWN INDICATION
     Dosage: UNK, UNKNOWN
     Route: 065
     Dates: start: 20130628
  32. ENOXOLONE [Concomitant]
     Indication: PRODUCT USED FOR UNKNOWN INDICATION
     Dosage: UNK, UNKNOWN
     Route: 065
     Dates: start: 20121109
  33. HYALURONATE SODIUM [Concomitant]
     Indication: PRODUCT USED FOR UNKNOWN INDICATION
     Dosage: UNK, UNKNOWN
     Route: 065
     Dates: start: 20121109
  34. POLYVIDONE [Concomitant]
     Indication: PRODUCT USED FOR UNKNOWN INDICATION
     Dosage: UNK, UNKNOWN
     Route: 065
     Dates: start: 20121109
  35. SULFAMETHOXAZOLE [Concomitant]
     Indication: PRODUCT USED FOR UNKNOWN INDICATION
     Dosage: UNK, UNKNOWN
     Route: 065
     Dates: start: 20121101
  36. SULFAMETHOXAZOLE [Concomitant]
     Dosage: UNK, UNKNOWN
     Route: 065
     Dates: start: 20121025
  37. TRIMETHOPRIM [Concomitant]
     Indication: PRODUCT USED FOR UNKNOWN INDICATION
     Dosage: UNK, UNKNOWN
     Route: 065
     Dates: start: 20121101
  38. TRIMETHOPRIM [Concomitant]
     Dosage: UNK, UNKNOWN
     Route: 065
     Dates: start: 20121025

REACTIONS (6)
  - Febrile neutropenia [Recovered/Resolved]
  - Tachycardia [Recovered/Resolved]
  - Chills [Recovered/Resolved]
  - Headache [Recovered/Resolved]
  - Pyrexia [Recovered/Resolved]
  - Sepsis [Recovered/Resolved]
